FAERS Safety Report 20406788 (Version 1)
Quarter: 2022Q1

REPORT INFORMATION
  Report Type: Spontaneous
  Country: US (occurrence: US)
  Receive Date: 20220131
  Receipt Date: 20220131
  Transmission Date: 20220424
  Serious: No
  Sender: FDA-Public Use
  Company Number: US-SEBELA IRELAND LIMITED-2021SEB00150

PATIENT
  Age: 76 Year
  Sex: Male
  Weight: 86.17 kg

DRUGS (11)
  1. PRAMOSONE [Suspect]
     Active Substance: HYDROCORTISONE ACETATE\PRAMOXINE HYDROCHLORIDE
     Indication: Anal pruritus
     Dosage: SMALL AMOUNT, TO HIS ANUS, 4X/DAY
     Route: 061
     Dates: start: 20211216, end: 20211222
  2. ATORVASTATIN [Concomitant]
     Active Substance: ATORVASTATIN
     Dosage: UNK
  3. NIACIN [Concomitant]
     Active Substance: NIACIN
     Dosage: UNK
  4. FOLIC ACID [Concomitant]
     Active Substance: FOLIC ACID
     Dosage: UNK
  5. SELENIUM [Concomitant]
     Active Substance: SELENIUM
     Dosage: UNK
  6. GINKGO [Concomitant]
     Active Substance: GINKGO
     Dosage: UNK
  7. FISH OIL [Concomitant]
     Active Substance: FISH OIL
     Dosage: UNK
  8. GLUCOSAMINE PLUS MSM [Concomitant]
     Dosage: UNK
  9. CALCIUM\VITAMIN D [Concomitant]
     Active Substance: CALCIUM\VITAMIN D
     Dosage: UNK
  10. GABAPENTIN [Concomitant]
     Active Substance: GABAPENTIN
     Dosage: UNK
  11. CORTISONE [Concomitant]
     Active Substance: CORTISONE
     Dosage: UNK
     Dates: start: 20211221

REACTIONS (1)
  - Drug ineffective [Recovered/Resolved]

NARRATIVE: CASE EVENT DATE: 20211216
